FAERS Safety Report 7714434 (Version 5)
Quarter: 2013Q2

REPORT INFORMATION
  Report Type: Spontaneous
  Country: US (occurrence: US)
  Receive Date: 20101216
  Receipt Date: 20130419
  Transmission Date: 20140414
  Serious: Yes (Other)
  Sender: FDA-Public Use
  Company Number: US-ELI_LILLY_AND_COMPANY-US200805003020

PATIENT
  Sex: Female
  Weight: 65.76 kg

DRUGS (14)
  1. CYMBALTA [Suspect]
     Indication: FIBROMYALGIA
     Dosage: 30 MG, DAILY (1/D)
     Dates: start: 2005
  2. CYMBALTA [Suspect]
     Dosage: 60 MG, DAILY (1/D)
  3. CYMBALTA [Suspect]
     Dosage: 90 MG, DAILY (1/D)
  4. CYMBALTA [Suspect]
     Dosage: 120 MG, DAILY (1/D)
     Route: 048
     Dates: start: 2007
  5. CYMBALTA [Suspect]
     Dosage: 60 MG, BID
  6. PLAQUENIL [Concomitant]
     Dosage: 400 MG, UNK
  7. SYNTHROID [Concomitant]
  8. FLEXERIL [Concomitant]
     Dosage: 10 MG, UNK
  9. PILOCARPINE [Concomitant]
     Dosage: 5 MG, UNK
  10. NEXIUM [Concomitant]
  11. ULTRAM [Concomitant]
     Dosage: UNK
  12. EVOXAC [Concomitant]
  13. AMITIZA [Concomitant]
  14. WELLBUTRIN [Concomitant]

REACTIONS (43)
  - Arrhythmia [Unknown]
  - Vomiting [Recovered/Resolved]
  - Cardiac arrest [Unknown]
  - Suicidal ideation [Recovered/Resolved]
  - Suicidal ideation [Unknown]
  - Drug ineffective [Recovered/Resolved]
  - Withdrawal syndrome [Recovered/Resolved]
  - Hot flush [Recovered/Resolved]
  - Feeling of body temperature change [Recovered/Resolved]
  - Chills [Recovered/Resolved]
  - Feeling abnormal [Unknown]
  - Nightmare [Unknown]
  - Hyperhidrosis [Recovered/Resolved]
  - Menstruation irregular [Unknown]
  - Dry eye [Unknown]
  - Dry mouth [Unknown]
  - Gastrointestinal disorder [Unknown]
  - Heart rate increased [Recovered/Resolved]
  - Weight decreased [Recovered/Resolved]
  - Medication error [Recovered/Resolved]
  - Pain in extremity [Unknown]
  - Arthralgia [Unknown]
  - Insomnia [Unknown]
  - Panic reaction [Unknown]
  - Intervertebral disc protrusion [Unknown]
  - Weight increased [Unknown]
  - Constipation [Not Recovered/Not Resolved]
  - Dyspnoea [Recovered/Resolved]
  - Abdominal pain [Unknown]
  - Muscle spasms [Unknown]
  - Joint swelling [Unknown]
  - Palpitations [Unknown]
  - Nausea [Unknown]
  - Anxiety [Unknown]
  - Pain [Recovered/Resolved]
  - Disturbance in attention [Recovered/Resolved]
  - Anxiety [Recovered/Resolved]
  - Agitation [Recovered/Resolved]
  - Hot flush [Recovered/Resolved]
  - Feeling cold [Recovered/Resolved]
  - Fibromyalgia [Recovered/Resolved]
  - Hypersensitivity [Unknown]
  - Crying [Unknown]
